FAERS Safety Report 15404030 (Version 1)
Quarter: 2018Q3

REPORT INFORMATION
  Report Type: Spontaneous
  Country: US (occurrence: US)
  Receive Date: 20180919
  Receipt Date: 20180919
  Transmission Date: 20181010
  Serious: No
  Sender: FDA-Public Use
  Company Number: US-AVADEL SPECIALTY PHARMACEUTICALS, LLC-2018AVA00136

PATIENT
  Age: 61 Year
  Sex: Male
  Weight: 117.91 kg

DRUGS (4)
  1. NOCTIVA [Suspect]
     Active Substance: DESMOPRESSIN ACETATE
     Indication: NOCTURIA
     Dosage: 1.66 ?G (1 SPRAY), 1X/DAY IN ONE NOSTRIL AT NIGHT (ALTERNATING NOSTRILS)
     Route: 045
     Dates: start: 20180703
  2. CELEBREX [Concomitant]
     Active Substance: CELECOXIB
  3. PERCOCET [Concomitant]
     Active Substance: ACETAMINOPHEN\OXYCODONE HYDROCHLORIDE
  4. XANAX [Concomitant]
     Active Substance: ALPRAZOLAM

REACTIONS (2)
  - Nasal discomfort [Recovering/Resolving]
  - Product preparation error [Recovered/Resolved]

NARRATIVE: CASE EVENT DATE: 20180703
